FAERS Safety Report 7772219-3 (Version None)
Quarter: 2011Q3

REPORT INFORMATION
  Report Type: 
  Country: None (occurrence: None)
  Receive Date: 20110922
  Receipt Date: 20100803
  Transmission Date: 20111222
  Serious: No
  Sender: FDA-Public Use
  Company Number: US-ASTRAZENECA-2008UW04296

PATIENT
  Age: 32 Year
  Sex: Female
  Weight: 110.2 kg

DRUGS (10)
  1. LITHIUM CARBONATE [Concomitant]
     Dosage: 300 MG TWO TABLETS DAILY
     Dates: start: 20060403
  2. LORAZEPAM [Concomitant]
     Dates: start: 20060501
  3. SEROQUEL [Suspect]
     Indication: DEPRESSION
     Route: 048
     Dates: start: 20000120, end: 20070901
  4. SEROQUEL [Suspect]
     Indication: BIPOLAR DISORDER
     Route: 048
     Dates: start: 20000120, end: 20070901
  5. METFORMIN [Concomitant]
     Dates: start: 20060403
  6. DEPAKOTE [Concomitant]
     Dosage: 500 MG TWO TABLETS AT NIGHT
     Dates: start: 20080115
  7. SEROQUEL [Suspect]
     Route: 048
     Dates: start: 20060316
  8. SEROQUEL [Suspect]
     Route: 048
     Dates: start: 20060316
  9. GEODON [Concomitant]
     Dosage: 80 MG THREE TABLETS AT NIGHT
     Dates: start: 20060601
  10. EFFEXOR [Concomitant]
     Dosage: 150 NG THREE TABLETS AT NIGHT
     Dates: start: 20060608

REACTIONS (11)
  - DIABETIC COMPLICATION [None]
  - GALLBLADDER DISORDER [None]
  - CYST [None]
  - WEIGHT INCREASED [None]
  - HYPERLIPIDAEMIA [None]
  - TYPE 2 DIABETES MELLITUS [None]
  - OVERWEIGHT [None]
  - BLOOD CHOLESTEROL INCREASED [None]
  - OBESITY [None]
  - ARTHRALGIA [None]
  - TONSILLAR DISORDER [None]
